FAERS Safety Report 6590074-4 (Version None)
Quarter: 2010Q1

REPORT INFORMATION
  Report Type: 
  Country: None (occurrence: None)
  Receive Date: 20100219
  Receipt Date: 20100212
  Transmission Date: 20100710
  Serious: Yes (Hospitalization)
  Sender: FDA-Public Use
  Company Number: DE-RB-002525-10

PATIENT
  Age: 54 Year
  Sex: Male

DRUGS (1)
  1. SUBUTEX [Suspect]
     Route: 065

REACTIONS (1)
  - ARTHROPATHY [None]
